FAERS Safety Report 7124969-X (Version None)
Quarter: 2010Q4

REPORT INFORMATION
  Report Type: 
  Country: None (occurrence: None)
  Receive Date: 20101122
  Receipt Date: 20101122
  Transmission Date: 20110411
  Serious: Yes (Life-Threatening, Hospitalization, Other)
  Sender: FDA-Public Use
  Company Number: None

PATIENT
  Sex: Male
  Weight: 126.5536 kg

DRUGS (5)
  1. PRISTIQ [Suspect]
     Indication: DEPRESSION
     Dosage: 50 MG ONCE DAILY PO
     Route: 048
     Dates: start: 20100701
  2. DEPAKOTE ER [Concomitant]
  3. IMIPRAMINE [Concomitant]
  4. FANAPT [Concomitant]
  5. DEPLIN [Concomitant]

REACTIONS (3)
  - FLASHBACK [None]
  - PNEUMONIA [None]
  - RESPIRATORY FAILURE [None]
